FAERS Safety Report 9435779 (Version 1)
Quarter: 2013Q3

REPORT INFORMATION
  Report Type: Spontaneous
  Country: FR (occurrence: FR)
  Receive Date: 20130801
  Receipt Date: 20130801
  Transmission Date: 20140515
  Serious: Yes (Life-Threatening)
  Sender: FDA-Public Use
  Company Number: FR-ASTRAZENECA-2013SE58272

PATIENT
  Age: 7407 Day
  Sex: Male

DRUGS (3)
  1. XEROQUEL [Suspect]
     Route: 048
     Dates: start: 20130705, end: 20130705
  2. SEROPRAM [Suspect]
     Route: 048
     Dates: start: 20130705, end: 20130705
  3. TEMESTA [Suspect]
     Route: 048
     Dates: start: 20130705, end: 20130705

REACTIONS (2)
  - Coma [Recovered/Resolved]
  - Tachycardia [Recovered/Resolved]
